FAERS Safety Report 4983229-3 (Version None)
Quarter: 2006Q2

REPORT INFORMATION
  Report Type: 
  Country: None (occurrence: None)
  Receive Date: 20060426
  Receipt Date: 20060420
  Transmission Date: 20061013
  Serious: Yes (Hospitalization)
  Sender: FDA-Public Use
  Company Number: PHBS2006FI05750

PATIENT
  Age: 73 Year
  Sex: Female

DRUGS (4)
  1. LESCOL [Suspect]
     Indication: LOW DENSITY LIPOPROTEIN INCREASED
     Dosage: 80 MG/DAY
     Route: 048
     Dates: start: 20050810, end: 20050920
  2. CARDIOL [Concomitant]
     Indication: HYPERTENSION
     Dosage: 25 MG/DAY
     Route: 048
  3. PRIMASPAN [Concomitant]
     Dosage: 100 MG/DAY
     Route: 048
  4. COHEMIN DEPOT [Concomitant]
     Indication: PERNICIOUS ANAEMIA
     Dosage: UNK, Q3MO
     Route: 030

REACTIONS (3)
  - ASTHMA [None]
  - DYSPNOEA [None]
  - MYALGIA [None]
